FAERS Safety Report 4806399-6 (Version None)
Quarter: 2005Q4

REPORT INFORMATION
  Report Type: 
  Country: None (occurrence: None)
  Receive Date: 20051019
  Receipt Date: 20051010
  Transmission Date: 20060501
  Serious: Yes (Hospitalization)
  Sender: FDA-Public Use
  Company Number: 234703K05USA

PATIENT
  Age: 44 Year
  Sex: Male
  Weight: 77.1115 kg

DRUGS (2)
  1. REBIF [Suspect]
     Indication: MULTIPLE SCLEROSIS
     Dosage: SEE IMAGE
     Route: 058
     Dates: end: 20050901
  2. REBIF [Suspect]
     Indication: MULTIPLE SCLEROSIS
     Dosage: SEE IMAGE
     Route: 058
     Dates: start: 20041122

REACTIONS (8)
  - ABSCESS [None]
  - ERYTHEMA [None]
  - INJECTION SITE REACTION [None]
  - INJECTION SITE ULCER [None]
  - NECROTISING FASCIITIS [None]
  - PAIN [None]
  - SCAB [None]
  - SWELLING [None]
